FAERS Safety Report 15323022 (Version 2)
Quarter: 2018Q3

REPORT INFORMATION
  Report Type: Spontaneous
  Country: NO (occurrence: NO)
  Receive Date: 20180827
  Receipt Date: 20180912
  Transmission Date: 20181010
  Serious: Yes (Other)
  Sender: FDA-Public Use
  Company Number: NO-PFIZER INC-2018312791

PATIENT
  Age: 60 Year
  Sex: Female

DRUGS (1)
  1. TERRA?CORTRIL POLYMYXIN B [Suspect]
     Active Substance: HYDROCORTISONE\OXYTETRACYCLINE HYDROCHLORIDE\POLYMYXIN B SULFATE
     Indication: EAR CANAL INJURY
     Dosage: 2?3 DROPS, 3X/DAY
     Route: 001

REACTIONS (2)
  - Product physical consistency issue [Unknown]
  - Hypoacusis [Recovering/Resolving]
